FAERS Safety Report 9899599 (Version 1)
Quarter: 2014Q1

REPORT INFORMATION
  Report Type: Spontaneous
  Country: FR (occurrence: FR)
  Receive Date: 20140214
  Receipt Date: 20140214
  Transmission Date: 20141002
  Serious: Yes (Death)
  Sender: FDA-Public Use
  Company Number: FR-MYLANLABS-2014S1002951

PATIENT
  Age: 27 Year
  Sex: Male
  Weight: 67 kg

DRUGS (3)
  1. METHADONE [Suspect]
     Dosage: MOST RECENTLY 30MG DAILY
     Route: 065
  2. VALIUM [Interacting]
     Dosage: MOST RECENTLY 50MG DAILY
     Route: 065
  3. IBOGAINE [Suspect]
     Route: 065

REACTIONS (6)
  - Overdose [Fatal]
  - Toxicity to various agents [Fatal]
  - Drug interaction [Fatal]
  - Cardiac arrest [Fatal]
  - Electrocardiogram QT prolonged [Fatal]
  - Drug interaction [Fatal]
